FAERS Safety Report 11248023 (Version 2)
Quarter: 2015Q3

REPORT INFORMATION
  Report Type: Spontaneous
  Country: PT (occurrence: PT)
  Receive Date: 20150708
  Receipt Date: 20150729
  Transmission Date: 20151125
  Serious: Yes (Hospitalization)
  Sender: FDA-Public Use
  Company Number: PT-BAYER-2015-370727

PATIENT
  Age: 14 Year
  Sex: Female

DRUGS (3)
  1. LORATADINE. [Suspect]
     Active Substance: LORATADINE
     Indication: PRURIGO
  2. AMOXICILLIN W/CLAVULANIC ACID [Suspect]
     Active Substance: AMOXICILLIN\CLAVULANIC ACID
     Indication: DERMATITIS BULLOUS
  3. FUSIDIC ACID [Suspect]
     Active Substance: FUSIDIC ACID
     Indication: DERMATITIS BULLOUS

REACTIONS (4)
  - Skin bacterial infection [Recovered/Resolved]
  - Dermatitis bullous [None]
  - Skin necrosis [Recovered/Resolved]
  - Henoch-Schonlein purpura [None]
